FAERS Safety Report 4608589-4 (Version None)
Quarter: 2005Q1

REPORT INFORMATION
  Report Type: 
  Country: None (occurrence: None)
  Receive Date: 20050315
  Receipt Date: 20050304
  Transmission Date: 20050727
  Serious: Yes (Hospitalization)
  Sender: FDA-Public Use
  Company Number: US-JNJFOC-20050302028

PATIENT
  Sex: Female

DRUGS (2)
  1. DURAGESIC-100 [Suspect]
     Dosage: ONE 50 UG/HR PATCH PLUS ONE 25 UG/HR PATCH.
     Route: 062
     Dates: start: 20031001
  2. DURAGESIC-100 [Suspect]
     Route: 062
     Dates: start: 20031001

REACTIONS (3)
  - DRUG EFFECT DECREASED [None]
  - HYPERHIDROSIS [None]
  - OVARIAN NEOPLASM [None]
